FAERS Safety Report 7081644-8 (Version None)
Quarter: 2010Q4

REPORT INFORMATION
  Report Type: 
  Country: None (occurrence: None)
  Receive Date: 20101103
  Receipt Date: 20101027
  Transmission Date: 20110411
  Serious: Yes (Death, Hospitalization)
  Sender: FDA-Public Use
  Company Number: PHHO2010US15888

PATIENT
  Sex: Female
  Weight: 55.329 kg

DRUGS (3)
  1. CERTICAN [Suspect]
     Indication: LIVER TRANSPLANT
     Dosage: 1.5 MG, BID
     Route: 048
     Dates: start: 20090701, end: 20091008
  2. PROGRAF [Concomitant]
     Indication: LIVER TRANSPLANT
     Dosage: 1 MG, BID
     Route: 048
     Dates: start: 20090531
  3. SORAFENIB [Concomitant]
     Indication: HEPATIC NEOPLASM MALIGNANT
     Dosage: UNK
     Dates: start: 20100601, end: 20100801

REACTIONS (11)
  - ABDOMINAL PAIN [None]
  - CHRONIC HEPATIC FAILURE [None]
  - CONCOMITANT DISEASE PROGRESSION [None]
  - CONDITION AGGRAVATED [None]
  - DISEASE PROGRESSION [None]
  - HEPATIC CANCER METASTATIC [None]
  - HEPATIC NEOPLASM MALIGNANT [None]
  - HEPATITIS C [None]
  - LIVER TRANSPLANT [None]
  - PARACENTESIS [None]
  - RENAL FAILURE ACUTE [None]
